FAERS Safety Report 5051166-4 (Version None)
Quarter: 2006Q3

REPORT INFORMATION
  Report Type: 
  Country: None (occurrence: None)
  Receive Date: 20060714
  Receipt Date: 20030129
  Transmission Date: 20061208
  Serious: Yes (Death)
  Sender: FDA-Public Use
  Company Number: GB-AMGEN-US184225

PATIENT
  Sex: Female

DRUGS (13)
  1. ENBREL [Suspect]
     Indication: RHEUMATOID ARTHRITIS
     Route: 058
     Dates: start: 20010117, end: 20021019
  2. METHOTREXATE [Concomitant]
     Dates: start: 20010101, end: 20010301
  3. PREMIQUE [Concomitant]
  4. RANITIDINE [Concomitant]
     Dates: start: 19910201
  5. PARACETAMOL [Concomitant]
     Dates: start: 20020807
  6. FLUOXETINE [Concomitant]
     Dates: start: 20020208
  7. ACETYLSALICYLIC ACID SRT [Concomitant]
     Dates: start: 19980301
  8. FOLIC ACID [Concomitant]
     Dates: start: 19971001
  9. CYANOCOBALAMIN [Concomitant]
  10. HYPROMELLOSE [Concomitant]
     Route: 047
     Dates: start: 20010515
  11. CEPHALEXIN [Concomitant]
  12. PLACEBO [Concomitant]
  13. INDOMETHACIN [Concomitant]
     Dates: start: 19990501

REACTIONS (11)
  - ACUTE RESPIRATORY FAILURE [None]
  - FUNGAL INFECTION [None]
  - GENERAL PHYSICAL HEALTH DETERIORATION [None]
  - LEGIONELLA INFECTION [None]
  - MULTI-ORGAN FAILURE [None]
  - PNEUMOCYSTIS JIROVECI PNEUMONIA [None]
  - PNEUMONITIS [None]
  - PULMONARY FIBROSIS [None]
  - RENAL IMPAIRMENT [None]
  - RESPIRATORY ACIDOSIS [None]
  - TUBERCULOSIS [None]
